FAERS Safety Report 5025830-7 (Version None)
Quarter: 2006Q2

REPORT INFORMATION
  Report Type: 
  Country: None (occurrence: None)
  Receive Date: 20060614
  Receipt Date: 20050802
  Transmission Date: 20061013
  Serious: Yes (Other)
  Sender: FDA-Public Use
  Company Number: JP-SANOFI-SYNTHELABO-F01200501392

PATIENT
  Sex: Female
  Weight: 38 kg

DRUGS (3)
  1. LEUCOVORIN CALCIUM [Suspect]
     Route: 042
     Dates: start: 20050615, end: 20050616
  2. FLUOROURACIL [Suspect]
     Dosage: 403.2 MG/M2  (500 MG)IV BOLUS AND 604.8 MG/M2(750 MG) IV 22 HOURS CONTINUOUS INFUSION, Q2W
     Route: 042
     Dates: start: 20050615, end: 20050616
  3. OXALIPLATIN [Suspect]
     Indication: COLON CANCER
     Route: 042
     Dates: start: 20050615, end: 20050615

REACTIONS (4)
  - INTESTINAL OBSTRUCTION [None]
  - LEUKOPENIA [None]
  - NEUTROPENIA [None]
  - PERITONITIS [None]
